FAERS Safety Report 9537931 (Version 1)
Quarter: 2013Q3

REPORT INFORMATION
  Report Type: Spontaneous
  Country: CH (occurrence: CH)
  Receive Date: 20130919
  Receipt Date: 20130919
  Transmission Date: 20140515
  Serious: Yes (Other)
  Sender: FDA-Public Use
  Company Number: PHHY2013CH100561

PATIENT
  Sex: Female

DRUGS (1)
  1. DEXAMETHASONE [Suspect]
     Dosage: 0.5 MG, TID

REACTIONS (3)
  - Foetal growth restriction [Unknown]
  - Weight increased [Unknown]
  - Maternal exposure during pregnancy [Unknown]
